FAERS Safety Report 4407239-X (Version None)
Quarter: 2004Q3

REPORT INFORMATION
  Report Type: 
  Country: None (occurrence: None)
  Receive Date: 20040721
  Receipt Date: 20040708
  Transmission Date: 20050211
  Serious: Yes (Hospitalization, Other)
  Sender: FDA-Public Use
  Company Number: 2004046582

PATIENT
  Age: 17 Year
  Sex: Male
  Weight: 63.5036 kg

DRUGS (2)
  1. NEURONTIN [Suspect]
     Indication: BIPOLAR DISORDER
     Dosage: 800 MG (400 MG, 2 IN 1 D) ORAL
     Route: 048
     Dates: start: 20020101
  2. CARBAMAZEPINE [Suspect]
     Indication: CONVULSION
     Dates: start: 20040101, end: 20040101

REACTIONS (8)
  - ABNORMAL BEHAVIOUR [None]
  - CONVERSION DISORDER [None]
  - CONVULSION [None]
  - DIZZINESS [None]
  - FALL [None]
  - HEAD INJURY [None]
  - LOSS OF CONSCIOUSNESS [None]
  - TREATMENT NONCOMPLIANCE [None]
